FAERS Safety Report 15607499 (Version 1)
Quarter: 2018Q4

REPORT INFORMATION
  Report Type: Spontaneous
  Country: CN (occurrence: CN)
  Receive Date: 20181112
  Receipt Date: 20181112
  Transmission Date: 20190205
  Serious: Yes (Hospitalization)
  Sender: FDA-Public Use
  Company Number: CN-MYLANLABS-2018M1084150

PATIENT
  Age: 62 Year
  Sex: Female

DRUGS (2)
  1. SULPHAMETHOXAZOLE/TRIMETHOPRIM [Suspect]
     Active Substance: SULFAMETHOXAZOLE\TRIMETHOPRIM
     Indication: NOCARDIOSIS
     Dosage: OVER A PERIOD OF THREE WEEKS
     Route: 048
     Dates: start: 2010
  2. CEFEPIME HYDROCHLORIDE. [Suspect]
     Active Substance: CEFEPIME HYDROCHLORIDE
     Indication: NOCARDIOSIS
     Dosage: OVER A PERIOD OF THREE WEEKS
     Route: 042
     Dates: start: 2010

REACTIONS (1)
  - Treatment failure [Unknown]
